FAERS Safety Report 17437791 (Version 1)
Quarter: 2020Q1

REPORT INFORMATION
  Report Type: Report from Study
  Country: None (occurrence: CO)
  Receive Date: 20200219
  Receipt Date: 20200219
  Transmission Date: 20200409
  Serious: Yes (Hospitalization)
  Sender: FDA-Public Use
  Company Number: CO-ABBVIE-20K-036-3282639-00

PATIENT
  Age: 1 Month
  Sex: Male

DRUGS (1)
  1. SYNAGIS [Suspect]
     Active Substance: PALIVIZUMAB
     Indication: BRONCHOPULMONARY DYSPLASIA
     Route: 030
     Dates: start: 20191227

REACTIONS (4)
  - Bronchiolitis [Not Recovered/Not Resolved]
  - Respiratory distress [Not Recovered/Not Resolved]
  - Neonatal hypoxia [Not Recovered/Not Resolved]
  - Breath sounds abnormal [Not Recovered/Not Resolved]

NARRATIVE: CASE EVENT DATE: 202001
